FAERS Safety Report 18255916 (Version 2)
Quarter: 2020Q3

REPORT INFORMATION
  Report Type: Report from Study
  Country: None (occurrence: US)
  Receive Date: 20200910
  Receipt Date: 20200914
  Transmission Date: 20201103
  Serious: Yes (Death, Hospitalization)
  Sender: FDA-Public Use
  Company Number: US-ABBVIE-20K-163-3557865-00

PATIENT
  Age: 57 Year
  Sex: Male
  Weight: 75.82 kg

DRUGS (1)
  1. CREON [Suspect]
     Active Substance: PANCRELIPASE AMYLASE\PANCRELIPASE LIPASE\PANCRELIPASE PROTEASE
     Indication: DYSPEPSIA
     Dosage: DAILY WITH MEALS AND SNACKS
     Route: 048
     Dates: end: 2020

REACTIONS (5)
  - Cerebrovascular accident [Fatal]
  - Aphonia [Fatal]
  - Constipation [Unknown]
  - Cardiac arrest [Fatal]
  - Myocardial infarction [Fatal]

NARRATIVE: CASE EVENT DATE: 20200817
